FAERS Safety Report 12677802 (Version 2)
Quarter: 2016Q3

REPORT INFORMATION
  Report Type: Spontaneous
  Country: US (occurrence: US)
  Receive Date: 20160823
  Receipt Date: 20160829
  Transmission Date: 20161109
  Serious: No
  Sender: FDA-Public Use
  Company Number: ALCN2016US005870

PATIENT
  Age: 77 Year
  Sex: Male

DRUGS (2)
  1. ICAPS LZ [Suspect]
     Active Substance: VITAMINS
     Indication: SUPPLEMENTATION THERAPY
     Dosage: 1 DF, QD
     Route: 048
  2. ICAPS LZ [Suspect]
     Active Substance: VITAMINS
     Dosage: 2 DF, QD
     Route: 048
     Dates: start: 2015

REACTIONS (1)
  - Eye pain [Not Recovered/Not Resolved]

NARRATIVE: CASE EVENT DATE: 201606
